FAERS Safety Report 10304652 (Version 2)
Quarter: 2014Q3

REPORT INFORMATION
  Report Type: Spontaneous
  Country: US (occurrence: US)
  Receive Date: 20140715
  Receipt Date: 20140715
  Transmission Date: 20150326
  Serious: No
  Sender: FDA-Public Use
  Company Number: US-TEVA-473437USA

PATIENT
  Sex: Female

DRUGS (1)
  1. TRIAMCINOLONE [Suspect]
     Active Substance: TRIAMCINOLONE
     Indication: NASAL CONGESTION
     Dates: start: 20140321

REACTIONS (4)
  - Drug ineffective [Unknown]
  - Liquid product physical issue [Unknown]
  - Epistaxis [Recovering/Resolving]
  - Nasal congestion [Recovered/Resolved]

NARRATIVE: CASE EVENT DATE: 20140321
